FAERS Safety Report 4831632-4 (Version None)
Quarter: 2005Q4

REPORT INFORMATION
  Report Type: 
  Country: None (occurrence: None)
  Receive Date: 20051116
  Receipt Date: 20051103
  Transmission Date: 20060501
  Serious: Yes (Death, Life-Threatening, Hospitalization)
  Sender: FDA-Public Use
  Company Number: 2005150186

PATIENT
  Age: 50 Year
  Sex: Female

DRUGS (1)
  1. VORICONAZOLE (VORICONAZOLE) [Suspect]
     Indication: ASPERGILLOSIS
     Dosage: 600 MG (200 MG, 2 IN 1 D)
     Dates: start: 20051001, end: 20051001

REACTIONS (4)
  - HAEMODIALYSIS [None]
  - PANCREATITIS [None]
  - PULMONARY OEDEMA [None]
  - RENAL FAILURE [None]
